FAERS Safety Report 5382990-6 (Version None)
Quarter: 2007Q3

REPORT INFORMATION
  Report Type: 
  Country: None (occurrence: None)
  Receive Date: 20070710
  Receipt Date: 20070703
  Transmission Date: 20080115
  Serious: Yes (Hospitalization, Disabling)
  Sender: FDA-Public Use
  Company Number: B0477736A

PATIENT
  Age: 72 Year
  Sex: Male
  Weight: 90 kg

DRUGS (5)
  1. ROPINIROLE HCL [Suspect]
     Indication: PARKINSON'S DISEASE
     Dates: start: 20050408, end: 20070622
  2. CONCOR [Concomitant]
     Indication: HYPERTENSION
     Dosage: 10MG PER DAY
     Route: 048
     Dates: start: 20020101
  3. GOPTEN [Concomitant]
     Indication: HYPERTENSION
     Dosage: 2MG PER DAY
     Route: 048
     Dates: start: 20020101
  4. AMLOZEK [Concomitant]
     Indication: HYPERTENSION
     Dosage: 5MG PER DAY
     Route: 048
     Dates: start: 20020101
  5. DIAPREL MR [Concomitant]
     Dosage: 80MG PER DAY
     Route: 048
     Dates: start: 20020101

REACTIONS (7)
  - ATRIAL FIBRILLATION [None]
  - CARDIOMEGALY [None]
  - CONFUSIONAL STATE [None]
  - DYSPNOEA [None]
  - LEFT VENTRICULAR FAILURE [None]
  - PALPITATIONS [None]
  - PNEUMONIA [None]
